FAERS Safety Report 14971285 (Version 1)
Quarter: 2018Q2

REPORT INFORMATION
  Report Type: Spontaneous
  Country: US (occurrence: US)
  Receive Date: 20180514
  Receipt Date: 20180514
  Transmission Date: 20180711
  Serious: Yes (Hospitalization)
  Sender: FDA-Public Use
  Company Number: None

PATIENT
  Age: 56 Year
  Sex: Female

DRUGS (13)
  1. MACRODANTIN [Concomitant]
     Active Substance: NITROFURANTOIN
     Dates: start: 20180511
  2. SIMVASTATIN. [Concomitant]
     Active Substance: SIMVASTATIN
     Dates: start: 20180511
  3. GABAPENTIN. [Concomitant]
     Active Substance: GABAPENTIN
     Dates: start: 20180511
  4. STOOL SOFTNER [Concomitant]
     Dates: start: 20180511
  5. TOVIAZ [Concomitant]
     Active Substance: FESOTERODINE FUMARATE
     Dates: start: 20180511
  6. GILENYA [Concomitant]
     Active Substance: FINGOLIMOD HYDROCHLORIDE
     Dates: start: 20180509
  7. MELOXICAM. [Concomitant]
     Active Substance: MELOXICAM
     Dates: start: 20180511
  8. VITAMIN D3 [Concomitant]
     Active Substance: CHOLECALCIFEROL
     Dates: start: 20180511
  9. AMPYRA [Concomitant]
     Active Substance: DALFAMPRIDINE
     Dates: start: 20180513
  10. BOTOX [Suspect]
     Active Substance: ONABOTULINUMTOXINA
     Indication: MULTIPLE SCLEROSIS
     Dosage: ?          OTHER FREQUENCY:EVERY 12 WEEKS;?
     Route: 030
     Dates: start: 20180308
  11. FENTANYL. [Concomitant]
     Active Substance: FENTANYL
     Dates: start: 20180511
  12. OXYCONTIN [Concomitant]
     Active Substance: OXYCODONE HYDROCHLORIDE
     Dates: start: 20180511
  13. SERTRALINE [Concomitant]
     Active Substance: SERTRALINE HYDROCHLORIDE
     Dates: start: 20180511

REACTIONS (4)
  - Nausea [None]
  - Fatigue [None]
  - Oral disorder [None]
  - Muscle spasms [None]
